FAERS Safety Report 9580176 (Version 1)
Quarter: 2013Q3

REPORT INFORMATION
  Report Type: Spontaneous
  Country: DE (occurrence: None)
  Receive Date: 20130916
  Receipt Date: 20130916
  Transmission Date: 20140515
  Serious: Yes (Other)
  Sender: FDA-Public Use
  Company Number: JPI-P-031388

PATIENT
  Age: 28 Year
  Sex: Male

DRUGS (1)
  1. XYREM (500 MILLIGRAM/MILLILITERS, SOLUTION) (SODIUM OXYBATE) [Suspect]
     Indication: PRODUCT USED FOR UNKNOWN INDICATION
     Dosage: (POSSIBLY 180 ML, ORAL
     Route: 048
     Dates: start: 201304

REACTIONS (3)
  - Suicide attempt [None]
  - Intentional overdose [None]
  - Fatigue [None]
